FAERS Safety Report 4870055-9 (Version None)
Quarter: 2005Q4

REPORT INFORMATION
  Report Type: 
  Country: None (occurrence: None)
  Receive Date: 20051229
  Receipt Date: 20051229
  Transmission Date: 20060501
  Serious: Yes (Hospitalization, Other)
  Sender: FDA-Public Use
  Company Number: None

PATIENT
  Sex: Male
  Weight: 79 kg

DRUGS (12)
  1. CYCLOPHOSPHAMIDE [Suspect]
     Indication: MULTIPLE MYELOMA
     Dosage: SEE IMAGE
     Route: 042
     Dates: start: 20050803
  2. MESNA [Suspect]
     Dosage: SEE IMAGE
     Route: 042
     Dates: start: 20050803
  3. NEUPOGEN [Suspect]
     Dosage: SEE IMAGE
     Route: 058
     Dates: start: 20050803
  4. NEUPOGEN [Concomitant]
  5. FOLATE [Concomitant]
  6. LEVAQUIN [Concomitant]
  7. FLUCONAZOLE [Concomitant]
  8. COMPAZINE [Concomitant]
  9. ATIVAN [Concomitant]
  10. ACCUPRIL [Concomitant]
  11. AVANDIA [Concomitant]
  12. K-DUR 10 [Concomitant]

REACTIONS (3)
  - BLOOD URINE PRESENT [None]
  - DYSURIA [None]
  - PYREXIA [None]
